FAERS Safety Report 5152508-1 (Version None)
Quarter: 2006Q4

REPORT INFORMATION
  Report Type: 
  Country: None (occurrence: None)
  Receive Date: 20061109
  Receipt Date: 20061102
  Transmission Date: 20070319
  Serious: Yes (Life-Threatening)
  Sender: FDA-Public Use
  Company Number: 082-20785-06110281

PATIENT
  Age: 83 Year
  Sex: Male

DRUGS (3)
  1. THALIDOMIDE-PHARMION (THALIDOMIDE) (CAPSULES) [Suspect]
     Indication: MULTIPLE MYELOMA
     Dosage: 200 MG, QD, ORAL
     Route: 048
     Dates: start: 20060216, end: 20060901
  2. RECORMON (ERYTHROPOIETIN HUMAN) [Concomitant]
  3. PREDNISONE TAB [Concomitant]

REACTIONS (1)
  - PLASMACYTOMA [None]
